FAERS Safety Report 6993279-3 (Version None)
Quarter: 2010Q3

REPORT INFORMATION
  Report Type: 
  Country: None (occurrence: None)
  Receive Date: 20100917
  Receipt Date: 20100205
  Transmission Date: 20110219
  Serious: No
  Sender: FDA-Public Use
  Company Number: US-ASTRAZENECA-2010SE05310

PATIENT
  Age: 45 Year
  Sex: Male
  Weight: 113.4 kg

DRUGS (8)
  1. SEROQUEL [Suspect]
     Indication: SLEEP DISORDER
     Route: 048
     Dates: start: 20050101
  2. AMLODIPINE [Concomitant]
     Route: 048
  3. ASPIRIN [Concomitant]
     Route: 048
  4. METOPROLOL [Concomitant]
     Route: 048
  5. BENAZEPRIL HYDROCHLORIDE [Concomitant]
     Route: 048
  6. TRAMADOL [Concomitant]
     Route: 048
  7. FEXOFENADINE HCL [Concomitant]
     Route: 048
  8. FLUTICASONE PROPIONATE [Concomitant]

REACTIONS (6)
  - CATARACT [None]
  - DRY MOUTH [None]
  - HEART RATE IRREGULAR [None]
  - NIGHTMARE [None]
  - POLLAKIURIA [None]
  - WEIGHT INCREASED [None]
